FAERS Safety Report 13831258 (Version 1)
Quarter: 2017Q3

REPORT INFORMATION
  Report Type: Report from Study
  Country: US (occurrence: US)
  Receive Date: 20170803
  Receipt Date: 20170803
  Transmission Date: 20171127
  Serious: Yes (Hospitalization, Other)
  Sender: FDA-Public Use
  Company Number: US-SHIRE-US201716522

PATIENT

DRUGS (1)
  1. GATTEX [Suspect]
     Active Substance: TEDUGLUTIDE\WATER
     Indication: SHORT-BOWEL SYNDROME
     Dosage: 0.773 ML, UNKNOWN
     Route: 058
     Dates: start: 20160218

REACTIONS (3)
  - Fatigue [Unknown]
  - Pancreatitis [Recovered/Resolved]
  - Nausea [Unknown]
